FAERS Safety Report 6300815-9 (Version None)
Quarter: 2009Q3

REPORT INFORMATION
  Report Type: 
  Country: None (occurrence: None)
  Receive Date: 20090807
  Receipt Date: 20090727
  Transmission Date: 20100115
  Serious: Yes (Other)
  Sender: FDA-Public Use
  Company Number: US-PFIZER INC-2009248862

PATIENT
  Age: 51 Year
  Sex: Female
  Weight: 86.18 kg

DRUGS (2)
  1. LYRICA [Suspect]
     Indication: DIABETIC NEUROPATHY
     Dosage: 75 MG, 2X/DAY
  2. TIOTROPIUM BROMIDE MONOHYDRATE [Suspect]
     Indication: ASTHMA
     Dosage: 18 MCG, 2X/DAY

REACTIONS (1)
  - CORONARY ARTERY BYPASS [None]
